FAERS Safety Report 21390401 (Version 1)
Quarter: 2022Q3

REPORT INFORMATION
  Report Type: Spontaneous
  Country: US (occurrence: None)
  Receive Date: 20220927
  Receipt Date: 20220927
  Transmission Date: 20221027
  Serious: Yes (Disabling)
  Sender: FDA-Public Use
  Company Number: None

PATIENT
  Age: 71 Year
  Sex: Female
  Weight: 58.5 kg

DRUGS (3)
  1. MUCINEX DM [Suspect]
     Active Substance: DEXTROMETHORPHAN HYDROBROMIDE\GUAIFENESIN
     Indication: Nasopharyngitis
     Dosage: OTHER QUANTITY : 1 TABLET(S)?FREQUENCY : EVERY 12 HOURS;
     Route: 048
     Dates: start: 20220925, end: 20220926
  2. VITAMIN D [Concomitant]
     Active Substance: VITAMIN D NOS
  3. FISH OIL [Concomitant]

REACTIONS (3)
  - Confusional state [None]
  - Memory impairment [None]
  - Coronavirus test positive [None]

NARRATIVE: CASE EVENT DATE: 20220926
